FAERS Safety Report 7396754-5 (Version None)
Quarter: 2011Q2

REPORT INFORMATION
  Report Type: 
  Country: None (occurrence: None)
  Receive Date: 20110406
  Receipt Date: 20110323
  Transmission Date: 20111010
  Serious: Yes (Hospitalization)
  Sender: FDA-Public Use
  Company Number: US-JNJFOC-20110104263

PATIENT
  Age: 22 Year
  Sex: Female
  Weight: 55.5 kg

DRUGS (3)
  1. CYCLOBENZAPRINE [Suspect]
     Indication: PRODUCT USED FOR UNKNOWN INDICATION
  2. ACETAMINOPHEN/HYDROCODONE [Suspect]
     Indication: PRODUCT USED FOR UNKNOWN INDICATION
  3. TRAMADOL [Suspect]
     Indication: PRODUCT USED FOR UNKNOWN INDICATION

REACTIONS (7)
  - RESPIRATORY DEPRESSION [None]
  - CONVULSION [None]
  - TACHYCARDIA [None]
  - MULTIPLE DRUG OVERDOSE [None]
  - COMA [None]
  - HYPOTENSION [None]
  - METABOLIC ACIDOSIS [None]
